FAERS Safety Report 26204040 (Version 1)
Quarter: 2025Q4

REPORT INFORMATION
  Report Type: Spontaneous
  Country: CN (occurrence: CN)
  Receive Date: 20251226
  Receipt Date: 20251226
  Transmission Date: 20260118
  Serious: Yes (Death, Other)
  Sender: AZURITY PHARMACEUTICALS
  Company Number: CN-AZURITY PHARMACEUTICALS, INC.-AZR202512-003879

PATIENT
  Age: 50 Year
  Sex: Male

DRUGS (3)
  1. VANCOMYCIN HYDROCHLORIDE [Suspect]
     Active Substance: VANCOMYCIN HYDROCHLORIDE
     Indication: Infection
     Dosage: 1 GRAM, Q12H (LARGE AMOUNT)
     Route: 042
  2. ENOXAPARIN SODIUM [Concomitant]
     Active Substance: ENOXAPARIN SODIUM
     Indication: Anticoagulant therapy
     Dosage: UNK
     Route: 065
  3. PARECOXIB SODIUM [Concomitant]
     Active Substance: PARECOXIB SODIUM
     Indication: Analgesic therapy
     Dosage: UNK
     Route: 065

REACTIONS (3)
  - Autoimmune haemolytic anaemia [Fatal]
  - Cerebral infarction [Fatal]
  - Shock [Fatal]
